FAERS Safety Report 5669228-7 (Version None)
Quarter: 2008Q1

REPORT INFORMATION
  Report Type: 
  Country: None (occurrence: None)
  Receive Date: 20080317
  Receipt Date: 20080312
  Transmission Date: 20080703
  Serious: Yes (Death, Hospitalization)
  Sender: FDA-Public Use
  Company Number: NL-ROCHE-552815

PATIENT
  Age: 74 Year
  Sex: Male

DRUGS (4)
  1. CAPECITABINE [Suspect]
     Indication: DRUG USE FOR UNKNOWN INDICATION
     Route: 048
     Dates: start: 20061107
  2. BEVACIZUMAB [Suspect]
     Indication: DRUG USE FOR UNKNOWN INDICATION
     Route: 041
     Dates: start: 20061107, end: 20061107
  3. OXALIPLATIN [Suspect]
     Route: 041
     Dates: start: 20061107, end: 20061107
  4. CETUXIMAB [Suspect]
     Indication: DRUG USE FOR UNKNOWN INDICATION
     Route: 041
     Dates: start: 20061122, end: 20061122

REACTIONS (4)
  - DIARRHOEA [None]
  - ILEUS [None]
  - METASTATIC NEOPLASM [None]
  - NAUSEA [None]
